FAERS Safety Report 8071665-0 (Version None)
Quarter: 2012Q1

REPORT INFORMATION
  Report Type: 
  Country: None (occurrence: None)
  Receive Date: 20120125
  Receipt Date: 20120120
  Transmission Date: 20120608
  Serious: Yes (Other)
  Sender: FDA-Public Use
  Company Number: US-PFIZER INC-2012017254

PATIENT
  Sex: Female

DRUGS (2)
  1. EFFEXOR XR [Suspect]
     Indication: BIPOLAR DISORDER
     Dosage: 37.5 MG, 2X/DAY
     Route: 048
  2. VENLAFAXINE HCL [Suspect]
     Indication: BIPOLAR DISORDER
     Dosage: UNK

REACTIONS (7)
  - HEPATIC FAILURE [None]
  - UNEVALUABLE EVENT [None]
  - MENTAL DISORDER [None]
  - RENAL DISORDER [None]
  - RENAL FAILURE [None]
  - PSORIASIS [None]
  - SKIN DISCOLOURATION [None]
